FAERS Safety Report 5220387-X (Version None)
Quarter: 2007Q1

REPORT INFORMATION
  Report Type: 
  Country: None (occurrence: None)
  Receive Date: 20061201
  Receipt Date: 20060711
  Transmission Date: 20070707
  Serious: No
  Sender: FDA-Public Use
  Company Number: 2006PV017344

PATIENT
  Age: 45 Year
  Sex: Female
  Weight: 81.6475 kg

DRUGS (4)
  1. BYETTA [Suspect]
     Indication: DIABETES MELLITUS NON-INSULIN-DEPENDENT
     Dosage: 10 MCG; BID; SC
     Route: 058
     Dates: start: 20060101
  2. METFORMIN HCL [Concomitant]
  3. GLUCOTROL [Concomitant]
  4. ORAL MEDICATION [Concomitant]

REACTIONS (3)
  - ABDOMINAL PAIN UPPER [None]
  - BLOOD CHOLESTEROL INCREASED [None]
  - ERUCTATION [None]
